FAERS Safety Report 17313794 (Version 1)
Quarter: 2020Q1

REPORT INFORMATION
  Report Type: Report from Study
  Country: None (occurrence: IT)
  Receive Date: 20200124
  Receipt Date: 20200124
  Transmission Date: 20200409
  Serious: Yes (Death)
  Sender: FDA-Public Use
  Company Number: IT-ABBVIE-20K-083-3247089-00

PATIENT
  Sex: Male

DRUGS (1)
  1. DUODOPA [Suspect]
     Active Substance: CARBIDOPA\LEVODOPA
     Indication: PARKINSON^S DISEASE
     Dosage: MD: 9,5+3??CR: 2,1??ED: 1,5
     Route: 050
     Dates: start: 20140715, end: 20200117

REACTIONS (2)
  - Cardiac arrest [Fatal]
  - General physical health deterioration [Fatal]
